FAERS Safety Report 6252033-0 (Version None)
Quarter: 2009Q2

REPORT INFORMATION
  Report Type: 
  Country: None (occurrence: None)
  Receive Date: 20090630
  Receipt Date: 20070414
  Transmission Date: 20091009
  Serious: Yes (Hospitalization)
  Sender: FDA-Public Use
  Company Number: US-ROCHE-638600

PATIENT
  Sex: Female

DRUGS (18)
  1. ENFUVIRTIDE [Suspect]
     Route: 065
     Dates: start: 20050121, end: 20050412
  2. ENFUVIRTIDE [Suspect]
     Route: 065
     Dates: start: 20050419, end: 20060501
  3. KALETRA [Concomitant]
     Indication: ANTIRETROVIRAL THERAPY
     Dates: start: 20041216, end: 20050412
  4. KALETRA [Concomitant]
     Dates: start: 20050419, end: 20080304
  5. EPZICOM [Concomitant]
     Indication: ANTIRETROVIRAL THERAPY
     Dates: start: 20041223, end: 20050412
  6. EPZICOM [Concomitant]
     Dates: start: 20050419
  7. INVIRASE [Concomitant]
     Indication: ANTIRETROVIRAL THERAPY
     Dates: start: 20050121, end: 20050412
  8. INVIRASE [Concomitant]
     Dates: start: 20050419, end: 20060501
  9. BACTRIM [Concomitant]
     Indication: ANTI-INFECTIVE THERAPY
     Dosage: DRUG NAME: BACTRIM DS.
     Dates: start: 20041115, end: 20080814
  10. BACTRIM [Concomitant]
     Dosage: DRUG NAME: BACTRIM IV.
     Dates: start: 20060509, end: 20060519
  11. FLUCONAZOLE [Concomitant]
     Indication: ANTIBIOTIC THERAPY
     Dates: start: 20050808, end: 20050908
  12. FLUCONAZOLE [Concomitant]
     Dates: start: 20060301, end: 20060301
  13. ZITHROMAX [Concomitant]
     Indication: ANTIBIOTIC THERAPY
     Dates: start: 20050808, end: 20080814
  14. BIAXIN [Concomitant]
     Indication: ANTIBIOTIC THERAPY
     Dates: start: 20051111, end: 20051125
  15. LEVAQUIN [Concomitant]
     Indication: ANTIBIOTIC THERAPY
     Dates: start: 20060509, end: 20060519
  16. ITRACONAZOLE [Concomitant]
     Indication: ANTIBIOTIC THERAPY
     Dates: start: 20060601, end: 20070713
  17. VALCYTE [Concomitant]
     Indication: ANTIBIOTIC THERAPY
     Dates: start: 20070119, end: 20080101
  18. KETOCONAZOLE [Concomitant]
     Indication: ANTIBIOTIC THERAPY
     Dates: start: 20070126, end: 20070326

REACTIONS (2)
  - PNEUMOCYSTIS JIROVECI PNEUMONIA [None]
  - RENAL TUBULAR ACIDOSIS [None]
